FAERS Safety Report 5299026-8 (Version None)
Quarter: 2007Q2

REPORT INFORMATION
  Report Type: 
  Country: None (occurrence: None)
  Receive Date: 20070417
  Receipt Date: 20070411
  Transmission Date: 20071010
  Serious: Yes (Hospitalization)
  Sender: FDA-Public Use
  Company Number: US-GENENTECH-239764

PATIENT
  Sex: Female
  Weight: 54 kg

DRUGS (3)
  1. BEVACIZUMAB [Suspect]
     Indication: GALLBLADDER CANCER
     Dosage: 10 MG, 2/MONTH
     Route: 042
     Dates: start: 20061121
  2. GEMCITABINE HCL [Suspect]
     Indication: GALLBLADDER CANCER
     Dosage: 1000 MG/M2, 2/MONTH
     Route: 042
     Dates: start: 20061121
  3. OXALIPLATIN [Suspect]
     Indication: GALLBLADDER CANCER
     Dosage: 85 MG/M2, 2/MONTH
     Route: 042
     Dates: start: 20061121

REACTIONS (5)
  - ACUTE MYOCARDIAL INFARCTION [None]
  - AORTIC ARTERIOSCLEROSIS [None]
  - CULTURE URINE POSITIVE [None]
  - MITRAL VALVE INCOMPETENCE [None]
  - SEPSIS [None]
